FAERS Safety Report 7009790-5 (Version None)
Quarter: 2010Q3

REPORT INFORMATION
  Report Type: 
  Country: None (occurrence: None)
  Receive Date: 20100923
  Receipt Date: 20100913
  Transmission Date: 20110219
  Serious: Yes (Other)
  Sender: FDA-Public Use
  Company Number: AR-ROCHE-723905

PATIENT
  Sex: Female
  Weight: 61 kg

DRUGS (10)
  1. TOCILIZUMAB [Suspect]
     Indication: RHEUMATOID ARTHRITIS
     Dosage: TEMPORARILY INTERRUPTED, DOSE REPORTED AS 4/8 MG/KG, FORM: VIALS.
     Route: 042
     Dates: start: 20060928, end: 20100826
  2. TOCILIZUMAB [Suspect]
     Dosage: PATIENT WAS PREVIOUSLY ENROLLED IN WA17822
     Route: 042
  3. METHOTREXATE [Suspect]
     Indication: RHEUMATOID ARTHRITIS
     Route: 048
     Dates: start: 20090824, end: 20100826
  4. DEXTROPROPOXYPHENE [Suspect]
     Indication: PRODUCT USED FOR UNKNOWN INDICATION
     Route: 065
     Dates: start: 20100816, end: 20100816
  5. REMIFENTANIL [Suspect]
     Indication: PRODUCT USED FOR UNKNOWN INDICATION
     Route: 065
     Dates: start: 20100813, end: 20100813
  6. FOLIC ACID [Concomitant]
     Dates: start: 20030701
  7. DICLOFENAC SODIUM [Concomitant]
     Indication: RHEUMATOID ARTHRITIS
     Route: 048
     Dates: start: 20090824, end: 20100816
  8. DICLOFENAC SODIUM [Concomitant]
     Route: 048
     Dates: start: 20100817, end: 20100826
  9. KETOROLAC TROMETHAMINE [Concomitant]
     Dates: start: 20100813, end: 20100813
  10. PREDNISONE [Concomitant]
     Dates: start: 20100816

REACTIONS (1)
  - ABORTION SPONTANEOUS [None]
